FAERS Safety Report 12901176 (Version 1)
Quarter: 2016Q4

REPORT INFORMATION
  Report Type: Spontaneous
  Country: US (occurrence: US)
  Receive Date: 20161101
  Receipt Date: 20161101
  Transmission Date: 20170207
  Serious: Yes (Hospitalization)
  Sender: FDA-Public Use
  Company Number: US-RELYPSA-RLY2016003303

PATIENT
  Age: 78 Year
  Sex: Female

DRUGS (16)
  1. AVAPRO [Concomitant]
     Active Substance: IRBESARTAN
  2. VELTASSA [Suspect]
     Active Substance: PATIROMER
     Indication: HYPERKALAEMIA
     Dosage: 8.4 G, QD
     Route: 048
     Dates: start: 20161012
  3. CENTRUM SILVER                     /02363801/ [Concomitant]
     Active Substance: MINERALS\VITAMINS
  4. FUROSEMIDE. [Concomitant]
     Active Substance: FUROSEMIDE
  5. FENOFIBRATE. [Concomitant]
     Active Substance: FENOFIBRATE
  6. TRICOR                             /00090101/ [Concomitant]
     Active Substance: ADENOSINE
  7. VITAMIN D3 [Concomitant]
     Active Substance: CHOLECALCIFEROL
     Dosage: 1000 UNK
  8. FERROUS SULFATE. [Concomitant]
     Active Substance: FERROUS SULFATE
  9. NIFEDIAC CC [Concomitant]
     Active Substance: NIFEDIPINE
  10. COREG [Concomitant]
     Active Substance: CARVEDILOL
  11. PROCRIT [Concomitant]
     Active Substance: ERYTHROPOIETIN
  12. CALCITRIOL. [Concomitant]
     Active Substance: CALCITRIOL
  13. PROTONIX                           /00661201/ [Concomitant]
     Active Substance: OMEPRAZOLE
  14. FOLIC ACID. [Concomitant]
     Active Substance: FOLIC ACID
  15. PROPANTHELINE BROMIDE. [Concomitant]
     Active Substance: PROPANTHELINE BROMIDE
  16. MESTINON [Concomitant]
     Active Substance: PYRIDOSTIGMINE BROMIDE

REACTIONS (1)
  - Gastrointestinal disorder [Unknown]

NARRATIVE: CASE EVENT DATE: 20161023
